FAERS Safety Report 13561987 (Version 4)
Quarter: 2018Q1

REPORT INFORMATION
  Report Type: Report from Study
  Country: None (occurrence: US)
  Receive Date: 20170518
  Receipt Date: 20180220
  Transmission Date: 20180508
  Serious: Yes (Other)
  Sender: FDA-Public Use
  Company Number: US-ABBVIE-17K-163-1979907-00

PATIENT
  Sex: Female

DRUGS (1)
  1. HUMIRA [Suspect]
     Active Substance: ADALIMUMAB
     Indication: RHEUMATOID ARTHRITIS
     Route: 058
     Dates: end: 201711

REACTIONS (6)
  - Hiatus hernia [Recovering/Resolving]
  - Visual impairment [Recovered/Resolved]
  - Foot deformity [Recovering/Resolving]
  - Post procedural complication [Recovering/Resolving]
  - Cataract [Recovered/Resolved]
  - Osteoporosis [Recovering/Resolving]
